FAERS Safety Report 9809186 (Version 1)
Quarter: 2014Q1

REPORT INFORMATION
  Report Type: Spontaneous
  Country: FR (occurrence: FR)
  Receive Date: 20140110
  Receipt Date: 20140110
  Transmission Date: 20141002
  Serious: Yes (Hospitalization)
  Sender: FDA-Public Use
  Company Number: PHHY2014FR002279

PATIENT
  Age: 64 Year
  Sex: Male

DRUGS (2)
  1. AMOXICILLIN [Suspect]
  2. DEXTROPROPOXYPHENE+PARACETAMOL [Suspect]

REACTIONS (3)
  - Acute generalised exanthematous pustulosis [Recovered/Resolved]
  - Mucous membrane disorder [Recovered/Resolved]
  - Renal impairment [Recovered/Resolved]
